FAERS Safety Report 25302912 (Version 3)
Quarter: 2025Q3

REPORT INFORMATION
  Report Type: Spontaneous
  Country: US (occurrence: US)
  Receive Date: 20250512
  Receipt Date: 20250810
  Transmission Date: 20251020
  Serious: No
  Sender: ALEXION PHARMACEUTICALS
  Company Number: US-AstraZeneca-CH-00866074AP

PATIENT
  Age: 69 Year
  Sex: Female

DRUGS (1)
  1. BREZTRI [Suspect]
     Active Substance: BUDESONIDE\FORMOTEROL\GLYCOPYRROLATE
     Route: 065

REACTIONS (12)
  - Device delivery system issue [Unknown]
  - Drug ineffective [Unknown]
  - Incorrect dose administered by device [Unknown]
  - Dyspnoea [Unknown]
  - Wrong technique in product usage process [Unknown]
  - Drug dose omission by device [Unknown]
  - Drug effect less than expected [Unknown]
  - Dyspnoea [Unknown]
  - Device delivery system issue [Unknown]
  - Wrong technique in device usage process [Unknown]
  - Incorrect dose administered by device [Unknown]
  - Device use issue [Unknown]
